FAERS Safety Report 6905777-9 (Version None)
Quarter: 2010Q3

REPORT INFORMATION
  Report Type: 
  Country: None (occurrence: None)
  Receive Date: 20100804
  Receipt Date: 20080604
  Transmission Date: 20110219
  Serious: Yes (Hospitalization, Other)
  Sender: FDA-Public Use
  Company Number: US-PFIZER INC-2008003357

PATIENT
  Sex: Male
  Weight: 95.5 kg

DRUGS (4)
  1. CHANTIX [Suspect]
     Indication: SMOKING CESSATION THERAPY
     Route: 048
     Dates: start: 20080101, end: 20080106
  2. HYDROCHLOROTHIAZIDE [Suspect]
  3. AVALIDE [Concomitant]
     Indication: HYPERTENSION
  4. VICODIN [Concomitant]

REACTIONS (10)
  - ABNORMAL DREAMS [None]
  - DIARRHOEA [None]
  - DRY SKIN [None]
  - INCORRECT DOSE ADMINISTERED [None]
  - INSOMNIA [None]
  - MUSCLE SPASMS [None]
  - OEDEMA PERIPHERAL [None]
  - PAIN IN EXTREMITY [None]
  - RENAL DISORDER [None]
  - SYNCOPE [None]
